FAERS Safety Report 4415739-1 (Version None)
Quarter: 2004Q2

REPORT INFORMATION
  Report Type: 
  Country: None (occurrence: None)
  Receive Date: 20040630
  Receipt Date: 20040315
  Transmission Date: 20050107
  Serious: Yes (Hospitalization)
  Sender: FDA-Public Use
  Company Number: 2004017968

PATIENT
  Age: 54 Year
  Sex: Male
  Weight: 80.7403 kg

DRUGS (3)
  1. ZOLOFT [Suspect]
     Indication: ANXIETY
     Dosage: 100 MG (DAILY), ORAL
     Route: 048
  2. SIMVASTATIN [Suspect]
     Indication: ARTERIAL DISORDER
  3. ATENOLOL [Concomitant]

REACTIONS (9)
  - ANXIETY [None]
  - ATHEROSCLEROSIS [None]
  - BLOOD CHOLESTEROL [None]
  - BLOOD CHOLESTEROL INCREASED [None]
  - BLOOD PRESSURE INCREASED [None]
  - DEPRESSION [None]
  - DRUG INTERACTION [None]
  - HEART RATE INCREASED [None]
  - PANIC ATTACK [None]
